FAERS Safety Report 4440491-3 (Version None)
Quarter: 2004Q3

REPORT INFORMATION
  Report Type: 
  Country: None (occurrence: None)
  Receive Date: 20040826
  Receipt Date: 20040602
  Transmission Date: 20050211
  Serious: Yes (Hospitalization)
  Sender: FDA-Public Use
  Company Number: 2004-0007152

PATIENT
  Age: 27 Year
  Sex: Male
  Weight: 50 kg

DRUGS (5)
  1. VISTIDE [Suspect]
     Indication: PROGRESSIVE MULTIFOCAL LEUKOENCEPHALOPATHY
     Dosage: 375 MG, 1 IN 1 WK, INTRAVENOUS
     Route: 042
     Dates: start: 20040401, end: 20040501
  2. PROBENECID [Concomitant]
  3. LOVENOX [Concomitant]
  4. BACTRIM [Concomitant]
  5. DILANTIN [Concomitant]

REACTIONS (3)
  - PYREXIA [None]
  - RASH [None]
  - UVEITIS [None]
